FAERS Safety Report 7356431-3 (Version None)
Quarter: 2011Q1

REPORT INFORMATION
  Report Type: 
  Country: None (occurrence: None)
  Receive Date: 20110316
  Receipt Date: 20110302
  Transmission Date: 20110831
  Serious: Yes (Other)
  Sender: FDA-Public Use
  Company Number: US-BAYER-2011-020218

PATIENT
  Sex: Female
  Weight: 49 kg

DRUGS (4)
  1. GLUCOSAMINE [Concomitant]
     Dosage: UNK
  2. CALCIUM CITRATE [Concomitant]
     Dosage: UNK
  3. VITAMIN D [Concomitant]
     Dosage: UNK
  4. BAYER WOMEN'S LOW STRENGTH ASPIRIN REGIMEN [Suspect]
     Indication: ISCHAEMIC HEART DISEASE PROPHYLAXIS
     Dosage: 1 DF, QD
     Route: 048
     Dates: start: 20110201, end: 20110201

REACTIONS (3)
  - ANGINA PECTORIS [None]
  - FATIGUE [None]
  - MEMORY IMPAIRMENT [None]
